FAERS Safety Report 6373820-4 (Version None)
Quarter: 2009Q3

REPORT INFORMATION
  Report Type: 
  Country: None (occurrence: None)
  Receive Date: 20090924
  Receipt Date: 20090610
  Transmission Date: 20100115
  Serious: Yes (Other)
  Sender: FDA-Public Use
  Company Number: US-ASTRAZENECA-2009UW13502

PATIENT
  Age: 26 Year
  Sex: Female
  Weight: 54.4 kg

DRUGS (4)
  1. SEROQUEL [Suspect]
     Indication: BIPOLAR DISORDER
     Route: 048
     Dates: start: 20090429, end: 20090503
  2. SEROQUEL [Suspect]
     Indication: INSOMNIA
     Route: 048
     Dates: start: 20090429, end: 20090503
  3. TEGRETOL [Concomitant]
  4. ADDERALL 10 [Concomitant]

REACTIONS (3)
  - ASTHENOPIA [None]
  - ILL-DEFINED DISORDER [None]
  - SOMNOLENCE [None]
